FAERS Safety Report 10243151 (Version 1)
Quarter: 2014Q2

REPORT INFORMATION
  Report Type: Spontaneous
  Country: US (occurrence: None)
  Receive Date: 20140616
  Receipt Date: 20140616
  Transmission Date: 20141212
  Serious: Yes (Life-Threatening, Hospitalization)
  Sender: FDA-Public Use
  Company Number: None

PATIENT
  Age: 59 Year
  Sex: Female
  Weight: 58 kg

DRUGS (5)
  1. TREPROSTINIL [Suspect]
     Indication: PULMONARY HYPERTENSION
     Dosage: 30 MG/KG/MIN?CONTIINOUS?INTRAVENOUS
     Route: 042
     Dates: start: 20131101, end: 20140614
  2. FUROSEMIDE [Concomitant]
  3. POTASSIUM CHLORIDE [Concomitant]
  4. LEVOTHYROXINE [Concomitant]
  5. SUPPLEMENTAL OXYGEN [Concomitant]

REACTIONS (3)
  - Bacterial infection [None]
  - Sepsis [None]
  - Wrong technique in drug usage process [None]
